FAERS Safety Report 7208162-8 (Version None)
Quarter: 2011Q1

REPORT INFORMATION
  Report Type: 
  Country: None (occurrence: None)
  Receive Date: 20110104
  Receipt Date: 20101216
  Transmission Date: 20110831
  Serious: Yes (Other)
  Sender: FDA-Public Use
  Company Number: US-BAYER-201029733NA

PATIENT
  Sex: Female

DRUGS (5)
  1. YASMIN [Suspect]
     Dosage: UNK UNK, UNK
     Route: 048
     Dates: start: 20050226, end: 20091004
  2. YASMIN [Suspect]
     Dosage: UNK
     Dates: start: 20090701, end: 20091001
  3. OCELLA [Suspect]
     Dosage: UNK
     Dates: start: 20080701, end: 20090601
  4. YASMIN [Suspect]
     Dosage: UNK
     Dates: start: 20050201, end: 20080601
  5. YAZ [Suspect]
     Indication: PRODUCT USED FOR UNKNOWN INDICATION
     Route: 048
     Dates: start: 20080725

REACTIONS (2)
  - CHOLELITHIASIS [None]
  - CHOLECYSTITIS CHRONIC [None]
